FAERS Safety Report 8804621 (Version 2)
Quarter: 2015Q1

REPORT INFORMATION
  Report Type: Report from Study
  Country: US (occurrence: US)
  Receive Date: 20120924
  Receipt Date: 20150115
  Transmission Date: 20150721
  Serious: Yes (Death)
  Sender: FDA-Public Use
  Company Number: US-ROCHE-1103561

PATIENT
  Sex: Male

DRUGS (7)
  1. ABRAXANE [Concomitant]
     Active Substance: PACLITAXEL
     Dosage: 108 MG IN SODIUM CHOLRIDE 0.9% 21.6 ML INFUSE OVER 30 MINS AT 43.2 MLS/HR.
     Route: 042
  2. AVASTIN [Suspect]
     Active Substance: BEVACIZUMAB
     Indication: METASTASES TO LIVER
  3. GEMZAR [Concomitant]
     Active Substance: GEMCITABINE HYDROCHLORIDE
     Dosage: 2170 MG IN NACL 0.9% 250 ML INFUSE OVER 1 HRS AT 250 MLS/HR.
     Route: 042
  4. AVASTIN [Suspect]
     Active Substance: BEVACIZUMAB
     Indication: PANCREATIC CARCINOMA
     Dosage: 943 MG IN NACL 0.9 % 100 ML, INFUSE OVER 90 MINS AT 66.6667 MLS/HR
     Route: 042
  5. NORVASC [Concomitant]
     Active Substance: AMLODIPINE BESYLATE
     Dosage: AS REQUIRED
     Route: 048
  6. METOCLOPRAMIDE. [Concomitant]
     Active Substance: METOCLOPRAMIDE
     Dosage: 10 MG IN NACL 0.9% 50 ML INFUSE OVER 15 MINS AT 200 MLS/HR
     Route: 042
  7. CLONIDINE. [Concomitant]
     Active Substance: CLONIDINE
     Dosage: AS REQUIRED
     Route: 048

REACTIONS (1)
  - Death [Fatal]

NARRATIVE: CASE EVENT DATE: 2011
